FAERS Safety Report 5163197-4 (Version None)
Quarter: 2006Q4

REPORT INFORMATION
  Report Type: 
  Country: None (occurrence: None)
  Receive Date: 20061204
  Receipt Date: 20061129
  Transmission Date: 20070319
  Serious: Yes (Other)
  Sender: FDA-Public Use
  Company Number: US-SOLVAY-00206003900

PATIENT
  Age: 18412 Day
  Sex: Female
  Weight: 100 kg

DRUGS (6)
  1. VITAMIN CAP [Concomitant]
     Indication: ILL-DEFINED DISORDER
     Dosage: DAILY DOSE:  UNKNOWN
     Route: 048
  2. ESTRATEST [Suspect]
     Indication: LIBIDO DECREASED
     Dosage: DAILY DOSE:  UNKNOWN
     Route: 048
     Dates: start: 20010101
  3. TOPROL-XL [Concomitant]
     Indication: MITRAL VALVE INCOMPETENCE
     Dosage: DAILY DOSE:  UNKNOWN
     Route: 048
  4. ESTRATEST [Suspect]
     Indication: ILL-DEFINED DISORDER
     Dosage: DAILY DOSE:  UNKNOWN
     Route: 048
  5. LEVOTHYROXINE SODIUM [Concomitant]
     Indication: HYPOTHYROIDISM
     Dosage: DAILY DOSE:  UNKNOWN
     Route: 048
  6. METHADONE HCL [Concomitant]
     Indication: PAIN
     Dosage: DAILY DOSE:  UNKNOWN
     Route: 048

REACTIONS (1)
  - LEUKOCYTOCLASTIC VASCULITIS [None]
